FAERS Safety Report 19743863 (Version 1)
Quarter: 2021Q3

REPORT INFORMATION
  Report Type: Spontaneous
  Country: LK (occurrence: LK)
  Receive Date: 20210824
  Receipt Date: 20210824
  Transmission Date: 20211014
  Serious: Yes (Hospitalization, Other)
  Sender: FDA-Public Use
  Company Number: LK-SETONPHARMA-2021SETLIT00003

PATIENT
  Age: 17 Year
  Sex: Male

DRUGS (4)
  1. INDOMETACIN [Concomitant]
     Active Substance: INDOMETHACIN
     Indication: PRODUCT USED FOR UNKNOWN INDICATION
     Route: 065
  2. PREDNISOLONE. [Suspect]
     Active Substance: PREDNISOLONE
     Dosage: HIGHDOSE
     Route: 065
  3. PREDNISOLONE. [Suspect]
     Active Substance: PREDNISOLONE
     Route: 048
  4. PREDNISOLONE. [Suspect]
     Active Substance: PREDNISOLONE
     Indication: PRODUCT USED FOR UNKNOWN INDICATION
     Route: 065

REACTIONS (6)
  - Cutaneous vasculitis [Unknown]
  - Acute kidney injury [Unknown]
  - Cytopenia [Unknown]
  - Renal impairment [Unknown]
  - Proteinuria [Unknown]
  - Pyrexia [Unknown]
